FAERS Safety Report 6410805-3 (Version None)
Quarter: 2009Q4

REPORT INFORMATION
  Report Type: 
  Country: None (occurrence: None)
  Receive Date: 20091022
  Receipt Date: 20091016
  Transmission Date: 20100525
  Serious: Yes (Hospitalization)
  Sender: FDA-Public Use
  Company Number: CHPA2009US20587

PATIENT
  Sex: Female
  Weight: 104.31 kg

DRUGS (17)
  1. VOLTAREN [Suspect]
     Indication: OSTEOARTHRITIS
     Dosage: 2 G, ONCE/SINGLE, (APPLIED 2 GRAMS ONCE TO BOTH KNEES AND BOTH SHOULDERS)
     Route: 061
     Dates: start: 20091013, end: 20091013
  2. VOLTAREN [Suspect]
     Indication: PAIN
     Dosage: 2 G, ONCE/SINGLE (APPLIED 2 GRAMS ONCE TO BOTH KNEES)
     Route: 061
     Dates: start: 20091015, end: 20091015
  3. METHADONE HYDROCHLORIDE [Suspect]
     Indication: PAIN
     Dosage: 80 MG, QD
     Route: 048
     Dates: start: 20080301
  4. METHADONE HYDROCHLORIDE [Suspect]
     Indication: OSTEOARTHRITIS
  5. SOMA [Suspect]
     Indication: PAIN
     Dosage: 350 MG, ONCE/SINGLE
     Route: 048
     Dates: start: 20091013, end: 20091013
  6. SOMA [Suspect]
     Dosage: 350 MG, ONCE/SINGLE
     Route: 048
     Dates: start: 20091015, end: 20091015
  7. ROXICODONE [Concomitant]
     Indication: PAIN
     Dosage: 30 MG, PRN (FOR BREAK THROUGH PAIN)
     Route: 048
     Dates: start: 20080301
  8. DILAUDID [Concomitant]
     Indication: PAIN
     Dosage: 2 MG, Q4H PRN PAIN
     Route: 042
     Dates: start: 20091016, end: 20091019
  9. CYMBALTA [Concomitant]
     Indication: MIGRAINE
     Dosage: 30 MG, QD (TAPERING OFF)
     Route: 048
     Dates: start: 20060101
  10. CYMBALTA [Concomitant]
     Indication: FIBROMYALGIA
  11. WELLBUTRIN [Concomitant]
     Indication: DEPRESSION
     Dosage: 300 MG, QD
     Route: 048
     Dates: start: 20090801
  12. PROTONIX [Concomitant]
     Indication: GASTROOESOPHAGEAL REFLUX DISEASE
     Dosage: UNK, 1 EACH DAY (TEMPORARILY INTERRUPTED WHILE IN THE HOSPITAL 16 OCT 2009- 19 OCT 2009
     Route: 048
     Dates: start: 20090901
  13. SINEQUAN [Concomitant]
     Indication: INSOMNIA
     Dosage: UNK, 1 AT HS
     Route: 048
     Dates: start: 20090801
  14. XANAX [Concomitant]
     Indication: ANXIETY
     Dosage: 1 MG, PRN (UP TO BID)
     Route: 048
     Dates: start: 19940101
  15. PRILOSEC [Concomitant]
     Indication: GASTROOESOPHAGEAL REFLUX DISEASE
     Dosage: UNK, 2 X DAILY WHILE IN THE HOSPITAL
     Route: 048
     Dates: start: 20091016, end: 20091019
  16. ATIVAN [Concomitant]
     Indication: ANXIETY
     Dosage: 1 MG, PRN (WHILE IN THE HOSPITAL)
     Route: 048
     Dates: start: 20091016, end: 20091019
  17. VITAMINS [Concomitant]
     Indication: NUTRITIONAL SUPPORT
     Dosage: UNK
     Route: 048

REACTIONS (11)
  - BLOOD GLUCOSE DECREASED [None]
  - DISCOMFORT [None]
  - ELECTROCARDIOGRAM ABNORMAL [None]
  - FATIGUE [None]
  - HYPOCALCAEMIA [None]
  - HYPOKALAEMIA [None]
  - HYPOMAGNESAEMIA [None]
  - OEDEMA PERIPHERAL [None]
  - PAIN [None]
  - PARAESTHESIA [None]
  - WRONG TECHNIQUE IN DRUG USAGE PROCESS [None]
